FAERS Safety Report 16968887 (Version 2)
Quarter: 2020Q2

REPORT INFORMATION
  Report Type: Report from Study
  Country: None (occurrence: AU)
  Receive Date: 20191029
  Receipt Date: 20200620
  Transmission Date: 20200713
  Serious: Yes (Other)
  Sender: FDA-Public Use
  Company Number: AU-ABBVIE-19K-008-2975365-00

PATIENT
  Sex: Female

DRUGS (1)
  1. HUMIRA [Suspect]
     Active Substance: ADALIMUMAB
     Indication: RHEUMATOID ARTHRITIS
     Route: 058
     Dates: start: 20190311, end: 201911

REACTIONS (5)
  - Rash [Recovered/Resolved]
  - Dermatitis allergic [Unknown]
  - Systemic lupus erythematosus [Unknown]
  - Rash [Unknown]
  - Eczema nummular [Unknown]

NARRATIVE: CASE EVENT DATE: 2019
